FAERS Safety Report 5316752-2 (Version None)
Quarter: 2007Q2

REPORT INFORMATION
  Report Type: 
  Country: None (occurrence: None)
  Receive Date: 20070504
  Receipt Date: 20070501
  Transmission Date: 20071010
  Serious: Yes (Other)
  Sender: FDA-Public Use
  Company Number: 2007AC00681

PATIENT
  Age: 10756 Day
  Sex: Female
  Weight: 73 kg

DRUGS (1)
  1. SEROQUEL [Suspect]
     Indication: BORDERLINE PERSONALITY DISORDER
     Route: 048
     Dates: start: 20050401

REACTIONS (1)
  - TRANSIENT ISCHAEMIC ATTACK [None]
